FAERS Safety Report 17950607 (Version 1)
Quarter: 2020Q2

REPORT INFORMATION
  Report Type: Spontaneous
  Country: US (occurrence: US)
  Receive Date: 20200626
  Receipt Date: 20200626
  Transmission Date: 20200714
  Serious: No
  Sender: FDA-Public Use
  Company Number: US-SUNOVION-2020SUN001803

PATIENT
  Age: 58 Year
  Sex: Female

DRUGS (7)
  1. SYNTHROID [Concomitant]
     Active Substance: LEVOTHYROXINE SODIUM
     Indication: THYROID DISORDER
     Dosage: UNK
  2. CLONIDINE. [Concomitant]
     Active Substance: CLONIDINE
     Dosage: UNK
     Route: 062
  3. APTIOM [Suspect]
     Active Substance: ESLICARBAZEPINE ACETATE
     Indication: TRIGEMINAL NEURALGIA
     Dosage: 200 MG, HS
     Route: 048
     Dates: start: 202006
  4. VALPARIN [Concomitant]
     Active Substance: VALPROATE SODIUM
     Indication: BLOOD PRESSURE ABNORMAL
     Dosage: UNK
  5. CALTRATE [Concomitant]
     Active Substance: CALCIUM CARBONATE
     Indication: BLOOD CALCIUM DECREASED
     Dosage: UNK
  6. VITAMIN D [Concomitant]
     Active Substance: VITAMIN D NOS
     Indication: VITAMIN D DECREASED
     Dosage: UNK
  7. ESTRADIOL. [Concomitant]
     Active Substance: ESTRADIOL
     Dosage: UNK
     Route: 067

REACTIONS (6)
  - Balance disorder [Not Recovered/Not Resolved]
  - Prescribed underdose [Unknown]
  - Off label use [Unknown]
  - Motion sickness [Not Recovered/Not Resolved]
  - Renal pain [Not Recovered/Not Resolved]
  - Myalgia [Not Recovered/Not Resolved]
